FAERS Safety Report 8833576 (Version 1)
Quarter: 2012Q4

REPORT INFORMATION
  Report Type: 
  Country: US (occurrence: US)
  Receive Date: 20121010
  Receipt Date: 20121010
  Transmission Date: 20130627
  Serious: Yes (Other)
  Sender: FDA-Public Use
  Company Number: US-ROCHE-1136108

PATIENT
  Age: 54 Year
  Sex: Male

DRUGS (6)
  1. RITUXAN [Suspect]
     Indication: NON-HODGKIN^S LYMPHOMA
     Route: 065
     Dates: start: 20011024
  2. RITUXAN [Suspect]
     Indication: LYMPHOMA
  3. CYCLOPHOSPHAMIDE [Concomitant]
  4. DOXORUBICIN [Concomitant]
  5. VINCRISTINE [Concomitant]
  6. PREDNISONE [Concomitant]

REACTIONS (7)
  - Bone marrow failure [Unknown]
  - Neuropathy peripheral [Unknown]
  - Nausea [Unknown]
  - Sinus congestion [Unknown]
  - Upper respiratory tract infection [Unknown]
  - Fatigue [Unknown]
  - Arthralgia [Unknown]
